FAERS Safety Report 19362172 (Version 1)
Quarter: 2021Q2

REPORT INFORMATION
  Report Type: Other
  Country: US (occurrence: US)
  Receive Date: 20210603
  Receipt Date: 20210603
  Transmission Date: 20210717
  Serious: No
  Sender: FDA-Public Use
  Company Number: US-NEUROCRINE BIOSCIENCES INC.-2021NBI02612

PATIENT

DRUGS (6)
  1. BACLOFEN. [Concomitant]
     Active Substance: BACLOFEN
     Dosage: 20 MILLIGRAM, TID
  2. BOTOX [Concomitant]
     Active Substance: ONABOTULINUMTOXINA
     Indication: MIGRAINE
     Dosage: UNKNOWN DOSE EVERY 3 MONTHS
  3. ATIVAN [Concomitant]
     Active Substance: LORAZEPAM
     Dosage: 1 MILLIGRAM, TID
  4. TOPAMAX [Concomitant]
     Active Substance: TOPIRAMATE
     Dosage: 25 MILLIGRAM, BID
  5. INGREZZA [Suspect]
     Active Substance: VALBENAZINE
     Indication: TARDIVE DYSKINESIA
     Dosage: 80 MILLIGRAM NIGHTLY
     Route: 048
     Dates: start: 20170719
  6. XANAX [Concomitant]
     Active Substance: ALPRAZOLAM
     Dosage: 1 MILLIGRAM, TID

REACTIONS (1)
  - Feeling abnormal [Unknown]
